FAERS Safety Report 14384759 (Version 1)
Quarter: 2018Q1

REPORT INFORMATION
  Report Type: Spontaneous
  Country: US (occurrence: US)
  Receive Date: 20180115
  Receipt Date: 20180115
  Transmission Date: 20180509
  Serious: Yes (Other)
  Sender: FDA-Public Use
  Company Number: US-JNJFOC-20180112021

PATIENT
  Sex: Male

DRUGS (12)
  1. TOPIRAMATE. [Concomitant]
     Active Substance: TOPIRAMATE
     Indication: SLEEP DISORDER THERAPY
     Dosage: HAS BEEN TAKING AT LEAST 15 YEARS
     Route: 065
  2. LANTUS [Concomitant]
     Active Substance: INSULIN GLARGINE
     Indication: DIABETES MELLITUS
     Dosage: HAS BEEN TAKING OVER 12 YEARS
     Route: 050
  3. METOPROLOL SUCCINATE. [Concomitant]
     Active Substance: METOPROLOL SUCCINATE
     Indication: BLOOD PRESSURE MEASUREMENT
     Dosage: STARTED 5 YEARS AGO APPROXIMATELY
     Route: 048
  4. HUMALOG [Concomitant]
     Active Substance: INSULIN LISPRO
     Indication: DIABETES MELLITUS
     Route: 065
  5. FOLIC ACID. [Concomitant]
     Active Substance: FOLIC ACID
     Dosage: HAS BEEN TAKING OVER 10 YEARS
     Route: 048
  6. XANAX [Concomitant]
     Active Substance: ALPRAZOLAM
     Indication: SLEEP DISORDER THERAPY
     Dosage: HAS BEEN TAKING FOR 15 YEARS
     Route: 048
  7. REMICADE [Suspect]
     Active Substance: INFLIXIMAB
     Indication: CROHN^S DISEASE
     Route: 042
  8. POTASSIUM CITRATE. [Concomitant]
     Active Substance: POTASSIUM CITRATE
     Indication: NEPHROLITHIASIS
     Dosage: GUESSED HE STARTED 5 YEARS AGO
     Route: 048
  9. TRAZODONE [Concomitant]
     Active Substance: TRAZODONE HYDROCHLORIDE
     Indication: SLEEP DISORDER THERAPY
     Dosage: HAS BEEN TAKING FOR 15 YEARS
     Route: 048
     Dates: start: 2016
  10. ECOTRIN [Concomitant]
     Active Substance: ASPIRIN
     Dosage: HAS BEEN TAKING FOREVER
     Route: 048
  11. TRAZODONE [Concomitant]
     Active Substance: TRAZODONE HYDROCHLORIDE
     Indication: SLEEP DISORDER THERAPY
     Dosage: HAS BEEN TAKING FOR 15 YEARS
     Route: 048
  12. FINASTERIDE. [Concomitant]
     Active Substance: FINASTERIDE
     Indication: PROSTATIC DISORDER
     Dosage: IN THE LAST 5 TO 6 YEARS PROBABLY
     Route: 048

REACTIONS (1)
  - Small intestinal resection [Unknown]
